FAERS Safety Report 4962934-9 (Version None)
Quarter: 2006Q2

REPORT INFORMATION
  Report Type: 
  Country: None (occurrence: None)
  Receive Date: 20060405
  Receipt Date: 20060327
  Transmission Date: 20061013
  Serious: Yes (Hospitalization)
  Sender: FDA-Public Use
  Company Number: PHHO2006CZ05113

PATIENT
  Age: 70 Year
  Sex: Female

DRUGS (3)
  1. ZOMETA [Suspect]
     Indication: MULTIPLE MYELOMA
     Dosage: 4 MG, QMO
     Route: 042
     Dates: start: 20051119, end: 20060313
  2. INTRON A [Concomitant]
     Indication: MULTIPLE MYELOMA
     Dosage: 3 MIU, TIW
     Route: 058
  3. TRAMAL [Concomitant]
     Indication: ANALGESIC THERAPY
     Dosage: 100 MG, QD
     Route: 048

REACTIONS (3)
  - OSTEITIS [None]
  - SURGERY [None]
  - TOOTH EXTRACTION [None]
